FAERS Safety Report 21762663 (Version 1)
Quarter: 2022Q4

REPORT INFORMATION
  Report Type: Spontaneous
  Country: US (occurrence: None)
  Receive Date: 20221220
  Receipt Date: 20221220
  Transmission Date: 20230112
  Serious: No
  Sender: FDA-Public Use
  Company Number: None

PATIENT

DRUGS (1)
  1. LANREOTIDE ACETATE [Suspect]
     Active Substance: LANREOTIDE ACETATE
     Route: 058

REACTIONS (5)
  - Manufacturing issue [None]
  - Device malfunction [None]
  - Needle issue [None]
  - Injection site pain [None]
  - Product substitution issue [None]
